FAERS Safety Report 6840105-9 (Version None)
Quarter: 2010Q3

REPORT INFORMATION
  Report Type: 
  Country: None (occurrence: None)
  Receive Date: 20100714
  Receipt Date: 20100122
  Transmission Date: 20110219
  Serious: Yes (Hospitalization, Other)
  Sender: FDA-Public Use
  Company Number: GB-JNJFOC-20100109557

PATIENT
  Age: 45 Year
  Sex: Female
  Weight: 43 kg

DRUGS (10)
  1. FENTANYL [Suspect]
     Indication: SEDATION
     Route: 042
  2. ACETAMINOPHEN AND CODEINE PHOSPHATE [Suspect]
     Indication: PRODUCT USED FOR UNKNOWN INDICATION
     Route: 065
  3. OCTAPRESSIN [Suspect]
     Indication: PRODUCT USED FOR UNKNOWN INDICATION
     Route: 065
  4. CITANEST [Suspect]
     Indication: LOCAL ANAESTHESIA
     Route: 065
  5. CITANEST [Suspect]
     Route: 065
  6. CLINDAMYCIN [Concomitant]
     Indication: ENDOCARDITIS PROPHYLAXIS
     Route: 042
  7. HYPNOVEL [Concomitant]
     Indication: SEDATION
     Route: 042
  8. WARFARIN [Concomitant]
     Indication: PRODUCT USED FOR UNKNOWN INDICATION
     Route: 065
  9. MIDAZOLAM [Concomitant]
     Indication: SEDATION
     Route: 065
  10. TPN [Concomitant]
     Indication: PARENTERAL NUTRITION
     Route: 065

REACTIONS (1)
  - METHAEMOGLOBINAEMIA [None]
